FAERS Safety Report 9519656 (Version 1)
Quarter: 2013Q3

REPORT INFORMATION
  Report Type: Spontaneous
  Country: US (occurrence: US)
  Receive Date: 20130912
  Receipt Date: 20130912
  Transmission Date: 20140515
  Serious: Yes (Other)
  Sender: FDA-Public Use
  Company Number: US-TEVA-431679USA

PATIENT
  Age: 66 Year
  Sex: Male

DRUGS (5)
  1. FLUOROURACIL [Suspect]
     Indication: ADENOCARCINOMA PANCREAS
     Dosage: INFUSION 225MG/M2 DAILY MON-FRI; 3 CYCLES WITH CONCURRENT RADIATION
     Route: 050
  2. GEMCITABINE [Suspect]
     Indication: ADENOCARCINOMA PANCREAS
     Dosage: 1000MG/M2 WEEKLY FOR 3 DOSES; THEN 3W ON, 1W OFF, STARTING 4W AFTER CHEMORADIATION
     Route: 065
  3. FILGRASTIM [Concomitant]
     Route: 065
  4. COLCHICINE [Concomitant]
     Indication: GOUTY ARTHRITIS
     Route: 065
  5. ALLOPURINOL [Concomitant]
     Dosage: 100MG DAILY
     Route: 065

REACTIONS (3)
  - Gouty arthritis [Recovering/Resolving]
  - Neutropenia [Recovered/Resolved]
  - Thrombocytopenia [Unknown]
